FAERS Safety Report 7482408-3 (Version None)
Quarter: 2011Q2

REPORT INFORMATION
  Report Type: 
  Country: None (occurrence: None)
  Receive Date: 20110516
  Receipt Date: 20090508
  Transmission Date: 20111010
  Serious: No
  Sender: FDA-Public Use
  Company Number: US-PFIZER INC-2009306349

PATIENT
  Sex: Female

DRUGS (6)
  1. BENADRYL [Suspect]
  2. RANITIDINE HYDROCHLORIDE [Suspect]
  3. PREDNISONE [Suspect]
  4. XYZAL [Suspect]
  5. ZYRTEC [Suspect]
  6. HYDROXYZINE HCL [Suspect]
     Dosage: UNK

REACTIONS (4)
  - ABDOMINAL DISCOMFORT [None]
  - DRUG INEFFECTIVE [None]
  - EYELID OEDEMA [None]
  - URTICARIA [None]
